FAERS Safety Report 5493765-1 (Version None)
Quarter: 2007Q4

REPORT INFORMATION
  Report Type: 
  Country: None (occurrence: None)
  Receive Date: 20071023
  Receipt Date: 20071016
  Transmission Date: 20080405
  Serious: Yes (Other)
  Sender: FDA-Public Use
  Company Number: BE-BOEHRINGER INGELHEIM PHARMACEUTICALS, INC.-2007-BL-00164BL

PATIENT
  Sex: Male
  Weight: 89 kg

DRUGS (6)
  1. VIRAMUNE [Suspect]
     Indication: HIV INFECTION
     Dosage: 200MG DURING 14 DAYS, THEREAFTER 400MG
     Route: 048
     Dates: start: 20070521, end: 20070730
  2. VIREAD [Suspect]
     Indication: HIV INFECTION
     Route: 048
     Dates: start: 20070521
  3. EPIVIR [Suspect]
     Indication: HIV INFECTION
     Route: 048
     Dates: start: 20070521, end: 20070730
  4. GLUCOVANCE [Concomitant]
     Indication: DIABETES MELLITUS
     Dosage: 500/5 MG
     Route: 048
     Dates: start: 20070604
  5. EUSAPRIM [Concomitant]
     Indication: PNEUMOCYSTIS JIROVECI PNEUMONIA
     Dosage: 800/160 MG
     Route: 048
     Dates: start: 20070604
  6. EUSAPRIM [Concomitant]
     Indication: TOXOPLASMOSIS

REACTIONS (1)
  - DRUG RESISTANCE [None]
